FAERS Safety Report 7811356-1 (Version None)
Quarter: 2011Q4

REPORT INFORMATION
  Report Type: 
  Country: None (occurrence: None)
  Receive Date: 20111011
  Receipt Date: 20110928
  Transmission Date: 20120403
  Serious: Yes (Hospitalization, Other)
  Sender: FDA-Public Use
  Company Number: 2011S1001265

PATIENT
  Sex: Female

DRUGS (10)
  1. LIVALO [Suspect]
     Indication: DYSLIPIDAEMIA
     Dosage: 4 MG, 1X, PO
     Route: 048
  2. VALPROIC ACID [Concomitant]
  3. METFORMIN HCL [Concomitant]
  4. ALENDRONATE SODIUM [Concomitant]
  5. SULFAMETHOXAZOLE ABD TRIMETHOPRIM [Concomitant]
  6. TRILIPIX [Concomitant]
  7. ASPIRIN [Concomitant]
  8. TRIAMTERENE AND HYDROCHLOROTHIAZIDE [Concomitant]
  9. SYNTHROID [Concomitant]
  10. MELOXICAM [Concomitant]

REACTIONS (1)
  - RHABDOMYOLYSIS [None]
